FAERS Safety Report 6618662-7 (Version None)
Quarter: 2010Q1

REPORT INFORMATION
  Report Type: 
  Country: None (occurrence: None)
  Receive Date: 20100305
  Receipt Date: 20100305
  Transmission Date: 20100710
  Serious: Yes (Disabling)
  Sender: FDA-Public Use
  Company Number: None

PATIENT
  Age: 72 Year
  Sex: Female
  Weight: 88.4514 kg

DRUGS (1)
  1. METRONIDAZOLE [Suspect]
     Dosage: 500 MG - 3 X A DAY
     Dates: start: 20091113, end: 20100123

REACTIONS (3)
  - ABASIA [None]
  - BURNING SENSATION [None]
  - PAIN IN EXTREMITY [None]
